FAERS Safety Report 10357474 (Version 1)
Quarter: 2014Q3

REPORT INFORMATION
  Report Type: Spontaneous
  Country: US (occurrence: None)
  Receive Date: 20140730
  Receipt Date: 20140730
  Transmission Date: 20150326
  Serious: Yes (Hospitalization)
  Sender: FDA-Public Use
  Company Number: 2014AP003674

PATIENT
  Age: 78 Year
  Sex: Male

DRUGS (6)
  1. RIVASTIGMINE TARTRATE. [Suspect]
     Active Substance: RIVASTIGMINE TARTRATE
     Indication: PRODUCT USED FOR UNKNOWN INDICATION
     Route: 061
  2. WARFARIN [Concomitant]
     Active Substance: WARFARIN
  3. LEVODOPA CARBIDOPA [Concomitant]
  4. METOPROLOL [Concomitant]
     Active Substance: METOPROLOL
  5. DONEPEZIL HYDROCHLORIDE. [Suspect]
     Active Substance: DONEPEZIL HYDROCHLORIDE
     Indication: PRODUCT USED FOR UNKNOWN INDICATION
  6. TRAZODONE [Concomitant]
     Active Substance: TRAZODONE HYDROCHLORIDE

REACTIONS (4)
  - Toxicity to various agents [None]
  - Miosis [None]
  - Sinus bradycardia [None]
  - Encephalopathy [None]
